FAERS Safety Report 18506314 (Version 3)
Quarter: 2020Q4

REPORT INFORMATION
  Report Type: Spontaneous
  Country: US (occurrence: US)
  Receive Date: 20201116
  Receipt Date: 20201130
  Transmission Date: 20210114
  Serious: Yes (Death, Other)
  Sender: FDA-Public Use
  Company Number: US-PFIZER INC-2020443921

PATIENT
  Age: 5 Year
  Sex: Male

DRUGS (1)
  1. LORLATINIB [Suspect]
     Active Substance: LORLATINIB
     Indication: NEOPLASM MALIGNANT
     Dosage: UNK

REACTIONS (4)
  - Wrong technique in product usage process [Unknown]
  - Thrombocytopenia [Unknown]
  - Pain in extremity [Unknown]
  - Neoplasm progression [Fatal]
